FAERS Safety Report 19412320 (Version 1)
Quarter: 2021Q2

REPORT INFORMATION
  Report Type: Spontaneous
  Country: AR (occurrence: AR)
  Receive Date: 20210614
  Receipt Date: 20210614
  Transmission Date: 20210717
  Serious: Yes (Other)
  Sender: FDA-Public Use
  Company Number: AR-MYLANLABS-2021M1034036

PATIENT
  Age: 10 Year
  Sex: Male

DRUGS (5)
  1. LAPENAX [Suspect]
     Active Substance: CLOZAPINE
     Indication: SCHIZOPHRENIA
     Dosage: 600 MILLIGRAM, QD
     Dates: start: 20130513
  2. LAPENAX [Suspect]
     Active Substance: CLOZAPINE
     Indication: INTELLECTUAL DISABILITY
  3. LAPENAX [Suspect]
     Active Substance: CLOZAPINE
     Indication: ENURESIS
  4. MAGNESIUM VALPROATE [Concomitant]
     Active Substance: VALPROATE MAGNESIUM
     Dosage: 1400 MILLIGRAM, QD
  5. OXYBUTYNIN. [Concomitant]
     Active Substance: OXYBUTYNIN CHLORIDE
     Dosage: 5 MILLIGRAM, QD

REACTIONS (4)
  - Neutropenia [Recovered/Resolved]
  - Off label use [Unknown]
  - White blood cell count decreased [Recovered/Resolved]
  - COVID-19 [Unknown]

NARRATIVE: CASE EVENT DATE: 20130513
